FAERS Safety Report 25918619 (Version 1)
Quarter: 2025Q4

REPORT INFORMATION
  Report Type: Report from Study
  Country: US (occurrence: US)
  Receive Date: 20251014
  Receipt Date: 20251014
  Transmission Date: 20260117
  Serious: Yes (Other)
  Sender: RANBAXY
  Company Number: US-SUN PHARMACEUTICAL INDUSTRIES INC-2025R1-531358

PATIENT
  Age: 63 Year
  Sex: Male

DRUGS (4)
  1. METHADONE [Suspect]
     Active Substance: METHADONE HYDROCHLORIDE
     Indication: Neoplasm malignant
     Dosage: 40 MILLIGRAM, TID
     Route: 048
  2. METHADONE [Suspect]
     Active Substance: METHADONE HYDROCHLORIDE
     Indication: Fracture pain
     Dosage: 50 MILLIGRAM, TID
     Route: 048
  3. HYDROMORPHONE [Suspect]
     Active Substance: HYDROMORPHONE
     Indication: Neoplasm malignant
     Dosage: IR, 24 MILLIGRAM, EVERY 3 HOURS
     Route: 048
  4. HYDROMORPHONE [Suspect]
     Active Substance: HYDROMORPHONE
     Indication: Fracture pain
     Dosage: 32 MILLIGRAM, PRN,3HR PRN
     Route: 048

REACTIONS (1)
  - Therapy non-responder [Unknown]
